FAERS Safety Report 16669658 (Version 8)
Quarter: 2021Q2

REPORT INFORMATION
  Report Type: Spontaneous
  Country: PT (occurrence: PT)
  Receive Date: 20190805
  Receipt Date: 20210510
  Transmission Date: 20210716
  Serious: Yes (Life-Threatening, Hospitalization, Other)
  Sender: FDA-Public Use
  Company Number: PT-MYLANLABS-2019M1072423

PATIENT
  Age: 17 Year
  Sex: Female

DRUGS (12)
  1. PARACETAMOL [Suspect]
     Active Substance: ACETAMINOPHEN
     Indication: PRODUCT USED FOR UNKNOWN INDICATION
     Dosage: UNK
     Route: 065
  2. PROPAFENONE. [Interacting]
     Active Substance: PROPAFENONE
     Dosage: 6 GRAM
     Route: 065
  3. IBUPROFEN. [Interacting]
     Active Substance: IBUPROFEN
     Indication: PRODUCT USED FOR UNKNOWN INDICATION
     Dosage: SINGLE DOSE, 1.5 G OF IBUPROFEN
     Route: 048
  4. DOPAMINE [Suspect]
     Active Substance: DOPAMINE HYDROCHLORIDE
     Indication: CARDIAC ARREST
     Dosage: 10 PG/KG/MIN
  5. DOPAMINE [Suspect]
     Active Substance: DOPAMINE HYDROCHLORIDE
     Dosage: 10 ?G/KG, Z (PER MINUTE)
  6. ATROPINE. [Suspect]
     Active Substance: ATROPINE
     Indication: CARDIO-RESPIRATORY ARREST
     Dosage: UNK
  7. EPINEPHRINE. [Suspect]
     Active Substance: EPINEPHRINE
     Indication: CARDIO-RESPIRATORY ARREST
     Dosage: 0.6 G/KG, Z (PER MIN)
  8. EPINEPHRINE. [Suspect]
     Active Substance: EPINEPHRINE
     Indication: CARDIAC ARREST
     Dosage: 0.15?0.3 PG/KG/MINUNK
  9. SODIUM BICARBONATE. [Suspect]
     Active Substance: SODIUM BICARBONATE
     Indication: CARDIO-RESPIRATORY ARREST
     Dosage: 1 MEQ/KG/HUNK
     Route: 042
  10. SODIUM BICARBONATE. [Suspect]
     Active Substance: SODIUM BICARBONATE
     Indication: METABOLIC ACIDOSIS
     Dosage: UNK
  11. DOPAMINE [Suspect]
     Active Substance: DOPAMINE HYDROCHLORIDE
     Indication: HAEMODYNAMIC INSTABILITY
     Dosage: 7.5 MICROGRAM/KILOGRAMUPTO 7.5 ?G/KG, Z (PER MIN)
  12. PROPAFENONE. [Suspect]
     Active Substance: PROPAFENONE
     Indication: PRODUCT USED FOR UNKNOWN INDICATION
     Dosage: SINGLE DOSE
     Route: 048

REACTIONS (37)
  - Coma [Recovered/Resolved]
  - Renal injury [Recovered/Resolved]
  - Drug interaction [Unknown]
  - Cardiac assistance device user [Recovered/Resolved]
  - pH body fluid abnormal [Recovered/Resolved]
  - Troponin I increased [Recovered/Resolved]
  - Therapy non-responder [Unknown]
  - Toxicity to various agents [Recovered/Resolved]
  - Acute kidney injury [Recovered/Resolved]
  - Partial seizures [Recovered/Resolved]
  - Cardio-respiratory arrest [Recovered/Resolved]
  - Myocardial necrosis marker increased [Recovered/Resolved]
  - Shock [Recovered/Resolved]
  - Poor peripheral circulation [Recovered/Resolved]
  - Generalised tonic-clonic seizure [Recovered/Resolved]
  - Ischaemic hepatitis [Recovered/Resolved]
  - Bradycardia [Recovered/Resolved]
  - Alanine aminotransferase increased [Recovered/Resolved]
  - Systolic dysfunction [Recovered/Resolved]
  - N-terminal prohormone brain natriuretic peptide [Recovered/Resolved]
  - Coma scale abnormal [Recovered/Resolved]
  - Seizure [Recovered/Resolved]
  - Intentional product misuse [Unknown]
  - Diastolic dysfunction [Recovered/Resolved]
  - Suicide attempt [Unknown]
  - Haemodynamic instability [Recovered/Resolved]
  - Cardiogenic shock [Recovered/Resolved]
  - Cardiac arrest [Recovered/Resolved]
  - Sinus bradycardia [Recovered/Resolved]
  - Poisoning deliberate [Unknown]
  - Metabolic acidosis [Recovered/Resolved]
  - Cardiac failure [Recovered/Resolved]
  - Intentional overdose [Unknown]
  - Drug abuse [Unknown]
  - Enzyme induction [Unknown]
  - Myocardial ischaemia [Recovered/Resolved]
  - Cardiovascular disorder [Recovered/Resolved]
